FAERS Safety Report 9361561 (Version 1)
Quarter: 2013Q2

REPORT INFORMATION
  Report Type: Spontaneous
  Country: US (occurrence: US)
  Receive Date: 20130621
  Receipt Date: 20130621
  Transmission Date: 20140414
  Serious: No
  Sender: FDA-Public Use
  Company Number: US-PFIZER INC-2013183963

PATIENT
  Age: 89 Year
  Sex: Female
  Weight: 47.62 kg

DRUGS (1)
  1. CHILDRENS ADVIL [Suspect]
     Indication: PAIN
     Dosage: THREE TEASPOONS, ONCE A DAY
     Dates: start: 20130618, end: 20130618

REACTIONS (1)
  - Dizziness [Recovered/Resolved]
